APPROVED DRUG PRODUCT: BIPHETAMINE 7.5
Active Ingredient: AMPHETAMINE RESIN COMPLEX; DEXTROAMPHETAMINE RESIN COMPLEX
Strength: EQ 3.75MG BASE;EQ 3.75MG BASE
Dosage Form/Route: CAPSULE, EXTENDED RELEASE;ORAL
Application: N010093 | Product #009
Applicant: UCB INC
Approved: Approved Prior to Jan 1, 1982 | RLD: No | RS: No | Type: DISCN